FAERS Safety Report 5747508-4 (Version None)
Quarter: 2008Q2

REPORT INFORMATION
  Report Type: 
  Country: None (occurrence: None)
  Receive Date: 20080523
  Receipt Date: 20080516
  Transmission Date: 20081010
  Serious: Yes (Hospitalization, Other)
  Sender: FDA-Public Use
  Company Number: US-ROCHE-565045

PATIENT
  Sex: Male

DRUGS (4)
  1. PEGASYS [Suspect]
     Indication: HEPATITIS C
     Dosage: REPORTED AS PRE FILLED SYRINGE (PFS), DISCONTINUED ABOUT 7-8 MONTHS AGO
     Route: 065
     Dates: start: 20070607, end: 20071001
  2. PEGASYS [Suspect]
     Route: 065
  3. RIBASPHERE [Suspect]
     Indication: HEPATITIS C
     Dosage: DISCONTINUED ABOUT 7-8 MONTHS AGO
     Route: 065
     Dates: start: 20070607, end: 20071001
  4. RIBASPHERE [Suspect]
     Route: 065

REACTIONS (4)
  - CHOLELITHIASIS [None]
  - CYSTITIS [None]
  - NEPHROLITHIASIS [None]
  - RED BLOOD CELL COUNT DECREASED [None]
